FAERS Safety Report 10973433 (Version 2)
Quarter: 2015Q2

REPORT INFORMATION
  Report Type: Spontaneous
  Country: DE (occurrence: DE)
  Receive Date: 20150401
  Receipt Date: 20150423
  Transmission Date: 20150821
  Serious: Yes (Other)
  Sender: FDA-Public Use
  Company Number: DE-ROCHE-1559074

PATIENT
  Age: 50 Year
  Sex: Female
  Weight: 73 kg

DRUGS (3)
  1. XGEVA [Concomitant]
     Active Substance: DENOSUMAB
     Route: 042
     Dates: start: 20140430
  2. AVASTIN [Suspect]
     Active Substance: BEVACIZUMAB
     Dosage: ON 10/MAR/2015, LAST DOSE PRIOR TO EVENT.
     Route: 042
     Dates: start: 20150331
  3. AVASTIN [Suspect]
     Active Substance: BEVACIZUMAB
     Indication: BREAST CANCER METASTATIC
     Dosage: LAST DOSE PRIOR TO EVENT ON 10/MAR/2015.
     Route: 042
     Dates: start: 20140408

REACTIONS (2)
  - Tinnitus [Unknown]
  - Sudden hearing loss [Recovered/Resolved]

NARRATIVE: CASE EVENT DATE: 20150310
